FAERS Safety Report 6421614-3 (Version None)
Quarter: 2009Q4

REPORT INFORMATION
  Report Type: 
  Country: None (occurrence: None)
  Receive Date: 20091030
  Receipt Date: 20091020
  Transmission Date: 20100525
  Serious: Yes (Other)
  Sender: FDA-Public Use
  Company Number: US-JNJFOC-20090803385

PATIENT
  Sex: Male

DRUGS (7)
  1. INTELENCE [Suspect]
     Indication: HIV INFECTION
     Route: 048
  2. TRUVADA [Suspect]
     Indication: HIV INFECTION
  3. RALTEGRAVIR [Suspect]
     Indication: HIV INFECTION
  4. ATAZANAVIR [Concomitant]
  5. RITONAVIR [Concomitant]
  6. AMINOCAPROIC ACID [Concomitant]
     Indication: RETROPERITONEAL HAEMATOMA
  7. CRYOPRECIPITATED AHF [Concomitant]
     Indication: HAEMORRHAGE

REACTIONS (1)
  - OPTIC NEURITIS [None]
